FAERS Safety Report 8266242-2 (Version None)
Quarter: 2012Q1

REPORT INFORMATION
  Report Type: 
  Country: None (occurrence: None)
  Receive Date: 20120327
  Receipt Date: 20100504
  Transmission Date: 20120608
  Serious: Yes (Other)
  Sender: FDA-Public Use
  Company Number: PHHY2010US26068

PATIENT
  Age: 56 Year
  Sex: Female

DRUGS (2)
  1. GLEEVEC [Suspect]
     Indication: CHRONIC MYELOID LEUKAEMIA
     Dosage: 400 MG/DAY, ORAL, 200MG/DAY, ORAL
     Dates: start: 20091014
  2. GLEEVEC [Suspect]
     Indication: CHRONIC MYELOID LEUKAEMIA
     Dosage: 400 MG/DAY, ORAL, 200MG/DAY, ORAL
     Dates: start: 20100301

REACTIONS (5)
  - PANCYTOPENIA [None]
  - BLOOD LACTATE DEHYDROGENASE INCREASED [None]
  - BLOOD ALBUMIN DECREASED [None]
  - BLOOD CREATININE INCREASED [None]
  - BLOOD GLUCOSE INCREASED [None]
